FAERS Safety Report 13953959 (Version 1)
Quarter: 2017Q3

REPORT INFORMATION
  Report Type: Spontaneous
  Country: US (occurrence: US)
  Receive Date: 20170911
  Receipt Date: 20170911
  Transmission Date: 20171128
  Serious: No
  Sender: FDA-Public Use
  Company Number: US-TEVA-773589USA

PATIENT
  Sex: Female

DRUGS (1)
  1. VENLAFAXINE [Suspect]
     Active Substance: VENLAFAXINE HYDROCHLORIDE
     Indication: HOT FLUSH
     Route: 065

REACTIONS (5)
  - Depression [Unknown]
  - Blood pressure increased [Recovered/Resolved]
  - Urinary tract infection [Unknown]
  - Arthralgia [Unknown]
  - Product use in unapproved indication [Unknown]
